FAERS Safety Report 5614339-5 (Version None)
Quarter: 2008Q1

REPORT INFORMATION
  Report Type: 
  Country: None (occurrence: None)
  Receive Date: 20080205
  Receipt Date: 20080124
  Transmission Date: 20080703
  Serious: Yes (Hospitalization)
  Sender: FDA-Public Use
  Company Number: FR-PFIZER INC-2008007618

PATIENT
  Sex: Female

DRUGS (7)
  1. ALDACTONE [Suspect]
     Route: 048
  2. AMLOR [Suspect]
     Route: 048
  3. LASILIX [Suspect]
     Route: 048
  4. KARDEGIC [Suspect]
     Route: 048
  5. DEROXAT [Suspect]
     Route: 048
  6. OGAST [Suspect]
     Route: 048
  7. DIFFU K [Suspect]

REACTIONS (1)
  - GOUT [None]
